FAERS Safety Report 15586867 (Version 1)
Quarter: 2018Q4

REPORT INFORMATION
  Report Type: Spontaneous
  Country: US (occurrence: US)
  Receive Date: 20181105
  Receipt Date: 20181105
  Transmission Date: 20190205
  Serious: No
  Sender: FDA-Public Use
  Company Number: US-MCGUFF PHARMACEUTICALS, INC.-2058415

PATIENT

DRUGS (2)
  1. ASCOR [Suspect]
     Active Substance: ASCORBIC ACID
     Route: 041
     Dates: start: 2018, end: 2018
  2. AMINO ACIDS [Concomitant]
     Active Substance: AMINO ACIDS
     Route: 041

REACTIONS (5)
  - Chills [Recovered/Resolved]
  - Nausea [Recovered/Resolved]
  - Vomiting [Recovered/Resolved]
  - Fatigue [Recovered/Resolved]
  - Diarrhoea [Recovered/Resolved]

NARRATIVE: CASE EVENT DATE: 2018
